FAERS Safety Report 5225846-1 (Version None)
Quarter: 2007Q1

REPORT INFORMATION
  Report Type: 
  Country: None (occurrence: None)
  Receive Date: 20070201
  Receipt Date: 20070125
  Transmission Date: 20070707
  Serious: Yes (Other)
  Sender: FDA-Public Use
  Company Number: US-JNJFOC-20070107007

PATIENT
  Age: 82 Year
  Sex: Female
  Weight: 56.7 kg

DRUGS (4)
  1. EXTRA STRENGTH TYLENOL [Suspect]
  2. EXTRA STRENGTH TYLENOL [Suspect]
     Indication: PAIN
  3. LISINOPRIL [Concomitant]
     Indication: HYPERTENSION
  4. OTHER UNSPECIFIED MEDICATIONS [Concomitant]

REACTIONS (1)
  - BLOOD PRESSURE INCREASED [None]
